FAERS Safety Report 8901063 (Version 1)
Quarter: 2012Q4

REPORT INFORMATION
  Report Type: 
  Country: US (occurrence: US)
  Receive Date: 20121109
  Receipt Date: 20121109
  Transmission Date: 20130627
  Serious: Yes (Other)
  Sender: FDA-Public Use
  Company Number: US-BAYER-2012-116570

PATIENT

DRUGS (5)
  1. ALEVE CAPLET/TABLET,MIDOL EXTENDED RELIEF CAPLET [Suspect]
     Indication: PAIN NOS
     Dosage: 20
  2. TYLENOL [PARACETAMOL] [Concomitant]
     Dosage: 6
  3. IBUPROFEN [Concomitant]
     Dosage: 3
  4. ADVIL [Concomitant]
     Dosage: UNK
  5. ADVIL PM [Concomitant]
     Dosage: 4

REACTIONS (3)
  - Hypoaesthesia [None]
  - Overdose [None]
  - Drug ineffective [None]
